FAERS Safety Report 14560898 (Version 1)
Quarter: 2018Q1

REPORT INFORMATION
  Report Type: Other
  Country: NL (occurrence: NL)
  Receive Date: 20180222
  Receipt Date: 20180222
  Transmission Date: 20180509
  Serious: Yes (Other)
  Sender: FDA-Public Use
  Company Number: NL-MACLEODS PHARMACEUTICALS US LTD-MAC2018010003

PATIENT

DRUGS (2)
  1. SILDENAFIL. [Suspect]
     Active Substance: SILDENAFIL
     Indication: ERECTILE DYSFUNCTION
     Dosage: 50 MG, UNK
     Route: 065
     Dates: start: 20180117, end: 20180122
  2. LYRICA [Concomitant]
     Active Substance: PREGABALIN
     Indication: ERECTILE DYSFUNCTION
     Dosage: UNK
     Route: 065

REACTIONS (2)
  - Headache [Unknown]
  - Sudden onset of sleep [Unknown]

NARRATIVE: CASE EVENT DATE: 20180118
